FAERS Safety Report 5117441-X (Version None)
Quarter: 2006Q3

REPORT INFORMATION
  Report Type: 
  Country: None (occurrence: None)
  Receive Date: 20060926
  Receipt Date: 20060905
  Transmission Date: 20061208
  Serious: Yes (Other)
  Sender: FDA-Public Use
  Company Number: 2006SP001242

PATIENT
  Sex: Female

DRUGS (1)
  1. PEG-INTRON [Suspect]
     Indication: HEPATITIS C
     Dates: start: 20040101, end: 20040101

REACTIONS (15)
  - ARTHRITIS [None]
  - DEPRESSION [None]
  - DIABETES MELLITUS [None]
  - EYE HAEMORRHAGE [None]
  - FATIGUE [None]
  - FIBROMYALGIA [None]
  - HEPATIC ENZYME INCREASED [None]
  - HEPATIC NEOPLASM [None]
  - HYPERTENSION [None]
  - MALAISE [None]
  - PLATELET COUNT DECREASED [None]
  - PRURITUS [None]
  - RED BLOOD CELL COUNT DECREASED [None]
  - THERAPY NON-RESPONDER [None]
  - WHITE BLOOD CELL COUNT DECREASED [None]
